FAERS Safety Report 25922731 (Version 1)
Quarter: 2025Q4

REPORT INFORMATION
  Report Type: Spontaneous
  Country: CA (occurrence: CA)
  Receive Date: 20251015
  Receipt Date: 20251015
  Transmission Date: 20260118
  Serious: Yes (Other)
  Sender: CELLTRION
  Company Number: CA-CELLTRION INC.-2025CA036719

PATIENT

DRUGS (29)
  1. INFLIXIMAB [Suspect]
     Active Substance: INFLIXIMAB
     Indication: Colitis ulcerative
     Dosage: 10 MG/KG
     Route: 042
  2. INFLIXIMAB [Suspect]
     Active Substance: INFLIXIMAB
     Dosage: 10 MG/KG
     Route: 042
  3. INFLIXIMAB [Suspect]
     Active Substance: INFLIXIMAB
     Dosage: 10 MG/KG
     Route: 042
  4. INFLIXIMAB [Suspect]
     Active Substance: INFLIXIMAB
     Dosage: 10 MG/KG
     Route: 042
  5. INFLIXIMAB [Suspect]
     Active Substance: INFLIXIMAB
     Dosage: 10 MG/KG
     Route: 042
  6. INFLIXIMAB [Suspect]
     Active Substance: INFLIXIMAB
     Dosage: 7500 MG
     Route: 042
  7. INFLIXIMAB [Suspect]
     Active Substance: INFLIXIMAB
     Dosage: 600 MG
     Route: 042
  8. INFLIXIMAB [Suspect]
     Active Substance: INFLIXIMAB
     Dosage: 7.5 MG/KG
     Route: 042
  9. INFLIXIMAB [Suspect]
     Active Substance: INFLIXIMAB
     Dosage: 7500 MG
     Route: 042
  10. INFLIXIMAB [Suspect]
     Active Substance: INFLIXIMAB
     Dosage: 660 MG
     Route: 042
  11. INFLIXIMAB [Suspect]
     Active Substance: INFLIXIMAB
     Dosage: 7500 MG
     Route: 042
  12. INFLIXIMAB [Suspect]
     Active Substance: INFLIXIMAB
     Dosage: 435 MG
     Route: 042
  13. INFLIXIMAB [Suspect]
     Active Substance: INFLIXIMAB
     Dosage: 455 MG
     Route: 042
  14. INFLIXIMAB [Suspect]
     Active Substance: INFLIXIMAB
     Dosage: 5 MG/KG
     Route: 042
  15. INFLIXIMAB [Suspect]
     Active Substance: INFLIXIMAB
     Dosage: 5 MG/KG
     Route: 042
  16. INFLIXIMAB [Suspect]
     Active Substance: INFLIXIMAB
     Dosage: 5 MG/KG
     Route: 042
  17. INFLIXIMAB [Suspect]
     Active Substance: INFLIXIMAB
     Dosage: 455 MG
     Route: 042
  18. INFLIXIMAB [Suspect]
     Active Substance: INFLIXIMAB
     Dosage: 5 MG/KG
     Route: 042
  19. INFLIXIMAB [Suspect]
     Active Substance: INFLIXIMAB
     Dosage: 460 MG
     Route: 042
  20. INFLIXIMAB [Suspect]
     Active Substance: INFLIXIMAB
     Dosage: 10 MG/KG
     Route: 042
  21. INFLIXIMAB [Suspect]
     Active Substance: INFLIXIMAB
     Dosage: 10 MG/KG
     Route: 042
  22. INFLIXIMAB [Suspect]
     Active Substance: INFLIXIMAB
     Dosage: 10 MG/KG
     Route: 042
  23. INFLIXIMAB [Suspect]
     Active Substance: INFLIXIMAB
     Dosage: 10 MG/KG
     Route: 042
  24. METHOTREXATE [Concomitant]
     Active Substance: METHOTREXATE
     Dosage: 1 DF
     Route: 065
  25. METHYLPHENIDATE HYDROCHLORIDE [Concomitant]
     Active Substance: METHYLPHENIDATE HYDROCHLORIDE
     Dosage: 10 MG
  26. PREDNISONE [Concomitant]
     Active Substance: PREDNISONE
  27. TRAZODONE [Concomitant]
     Active Substance: TRAZODONE HYDROCHLORIDE
     Dosage: 50 MG
  28. VENLAFAXINE [Concomitant]
     Active Substance: VENLAFAXINE HYDROCHLORIDE
     Dosage: 150 MG
  29. VYVANSE [Concomitant]
     Active Substance: LISDEXAMFETAMINE DIMESYLATE
     Dosage: 40 MG

REACTIONS (10)
  - Body temperature increased [Not Recovered/Not Resolved]
  - Weight increased [Not Recovered/Not Resolved]
  - Condition aggravated [Not Recovered/Not Resolved]
  - Hypertension [Not Recovered/Not Resolved]
  - COVID-19 [Not Recovered/Not Resolved]
  - Pneumonia bacterial [Not Recovered/Not Resolved]
  - Off label use [Not Recovered/Not Resolved]
  - Inappropriate schedule of product administration [Not Recovered/Not Resolved]
  - Overdose [Unknown]
  - Intentional product use issue [Unknown]
